FAERS Safety Report 18790968 (Version 2)
Quarter: 2021Q1

REPORT INFORMATION
  Report Type: Spontaneous
  Country: US (occurrence: US)
  Receive Date: 20210126
  Receipt Date: 20210128
  Transmission Date: 20210419
  Serious: No
  Sender: FDA-Public Use
  Company Number: US-PFIZER INC-2021058660

PATIENT
  Age: 53 Year
  Sex: Female

DRUGS (1)
  1. PIROXICAM. [Suspect]
     Active Substance: PIROXICAM
     Dosage: UNK

REACTIONS (3)
  - Drug hypersensitivity [Unknown]
  - Urticaria [Unknown]
  - Dyspnoea [Unknown]
